FAERS Safety Report 8991315 (Version 1)
Quarter: 2012Q4

REPORT INFORMATION
  Report Type: Report from Study
  Country: DE (occurrence: DE)
  Receive Date: 20121231
  Receipt Date: 20121231
  Transmission Date: 20130627
  Serious: Yes (Death)
  Sender: FDA-Public Use
  Company Number: DE-ROCHE-1173644

PATIENT
  Sex: Male
  Weight: 90 kg

DRUGS (2)
  1. BEVACIZUMAB [Suspect]
     Indication: BRAIN NEOPLASM MALIGNANT
     Dosage: Most recent Dose on 22/Nov/2012, Actual dose given as last administration: 850 mg
     Route: 042
     Dates: start: 20120913
  2. LOMUSTINE [Suspect]
     Indication: BRAIN NEOPLASM MALIGNANT
     Dosage: Actual dose given as last administration: 200 mg
     Route: 048
     Dates: start: 20121026

REACTIONS (1)
  - Glioblastoma [Fatal]
